FAERS Safety Report 24328195 (Version 2)
Quarter: 2024Q3

REPORT INFORMATION
  Report Type: Spontaneous
  Country: US (occurrence: US)
  Receive Date: 20240917
  Receipt Date: 20240917
  Transmission Date: 20241016
  Serious: No
  Sender: PFIZER
  Company Number: US-PFIZER INC-202400204148

PATIENT
  Age: 25 Year
  Sex: Female

DRUGS (4)
  1. LITFULO [Interacting]
     Active Substance: RITLECITINIB TOSYLATE
     Indication: Alopecia areata
     Dosage: 50 MG
     Dates: start: 20240220
  2. LITFULO [Interacting]
     Active Substance: RITLECITINIB TOSYLATE
     Dosage: 50 MG, DAILY
     Dates: start: 20240528
  3. TOFACITINIB CITRATE [Interacting]
     Active Substance: TOFACITINIB CITRATE
     Indication: Alopecia areata
     Dosage: UNK
     Dates: start: 20240220
  4. TOFACITINIB [Interacting]
     Active Substance: TOFACITINIB
     Indication: Alopecia areata
     Dosage: UNK
     Route: 061
     Dates: start: 20240528

REACTIONS (4)
  - Off label use [Unknown]
  - Product use issue [Unknown]
  - Off label use [Unknown]
  - Drug interaction [Unknown]

NARRATIVE: CASE EVENT DATE: 20240220
